FAERS Safety Report 25486150 (Version 1)
Quarter: 2025Q2

REPORT INFORMATION
  Report Type: Spontaneous
  Country: TR (occurrence: TR)
  Receive Date: 20250626
  Receipt Date: 20250626
  Transmission Date: 20250716
  Serious: Yes (Congenital Anomaly, Other)
  Sender: PRINSTON PHARMACEUTICAL
  Company Number: TR-PRINSTON PHARMACEUTICAL INC.-2025PRN00206

PATIENT

DRUGS (1)
  1. LEVETIRACETAM [Suspect]
     Active Substance: LEVETIRACETAM

REACTIONS (3)
  - Microcephaly [Unknown]
  - Failure to thrive [Unknown]
  - Foetal exposure during pregnancy [Unknown]
